FAERS Safety Report 6481265-1 (Version None)
Quarter: 2009Q4

REPORT INFORMATION
  Report Type: 
  Country: None (occurrence: None)
  Receive Date: 20091208
  Receipt Date: 20091204
  Transmission Date: 20100525
  Serious: Yes (Death)
  Sender: FDA-Public Use
  Company Number: A0833626A

PATIENT
  Age: 40 Year
  Sex: Male

DRUGS (4)
  1. ADVAIR DISKUS 100/50 [Suspect]
     Indication: CHRONIC OBSTRUCTIVE PULMONARY DISEASE
     Dosage: 1PUFF TWICE PER DAY
     Route: 055
     Dates: start: 20091021, end: 20091127
  2. LASIX [Concomitant]
  3. METOPROLOL [Concomitant]
  4. FOLIC ACID [Concomitant]

REACTIONS (1)
  - DEATH [None]
